FAERS Safety Report 20061751 (Version 1)
Quarter: 2021Q4

REPORT INFORMATION
  Report Type: Spontaneous
  Country: AR (occurrence: AR)
  Receive Date: 20211112
  Receipt Date: 20211112
  Transmission Date: 20220303
  Serious: Yes (Life-Threatening, Hospitalization)
  Sender: FDA-Public Use
  Company Number: None

PATIENT
  Age: 85 Year
  Sex: Female

DRUGS (5)
  1. HYDROCORTISONE [Interacting]
     Active Substance: HYDROCORTISONE
     Indication: Adrenal insufficiency
     Dosage: 10 MILLIGRAM.DAY
     Route: 065
  2. HYDROCORTISONE [Interacting]
     Active Substance: HYDROCORTISONE
     Dosage: 100 MILLIGRAM, ONE TIME, BOLUS
     Route: 042
  3. HYDROCORTISONE [Interacting]
     Active Substance: HYDROCORTISONE
     Dosage: 30 MILLIGRAM, QD
     Route: 065
  4. MODAFINIL [Interacting]
     Active Substance: MODAFINIL
     Indication: Apathy
     Dosage: 100 MILLIGRAM/DAY
     Route: 065
  5. LEVOTHYROXINE [Concomitant]
     Active Substance: LEVOTHYROXINE
     Indication: Product used for unknown indication
     Dosage: 50 MICROGRAM/DAY
     Route: 065

REACTIONS (5)
  - Hypotension [Recovered/Resolved]
  - Adrenocortical insufficiency acute [Recovered/Resolved]
  - Hyponatraemia [Recovered/Resolved]
  - Metabolic encephalopathy [Recovered/Resolved]
  - Drug interaction [Recovered/Resolved]
